FAERS Safety Report 10172088 (Version 2)
Quarter: 2014Q2

REPORT INFORMATION
  Report Type: Spontaneous
  Country: US (occurrence: US)
  Receive Date: 20140515
  Receipt Date: 20140604
  Transmission Date: 20141212
  Serious: No
  Sender: FDA-Public Use
  Company Number: US-009507513-1405USA006461

PATIENT
  Age: 39 Year
  Sex: Female
  Weight: 58.96 kg

DRUGS (2)
  1. CLARITIN [Suspect]
     Indication: HYPERSENSITIVITY
     Dosage: UNKNOWN
     Route: 048
     Dates: start: 20140508, end: 20140510
  2. CLARITIN [Suspect]
     Indication: SEASONAL ALLERGY

REACTIONS (1)
  - Drug ineffective [Unknown]
